FAERS Safety Report 6348198-2 (Version None)
Quarter: 2009Q3

REPORT INFORMATION
  Report Type: 
  Country: None (occurrence: None)
  Receive Date: 20090908
  Receipt Date: 20090824
  Transmission Date: 20100115
  Serious: Yes (Hospitalization)
  Sender: FDA-Public Use
  Company Number: 2009AL005562

PATIENT
  Age: 4 Year
  Sex: Male

DRUGS (1)
  1. FEVERALL [Suspect]
     Indication: PYREXIA
     Dosage: 15 MG/KG

REACTIONS (6)
  - ABDOMINAL PAIN [None]
  - ANGIOEDEMA [None]
  - CONJUNCTIVAL HYPERAEMIA [None]
  - DERMATITIS ALLERGIC [None]
  - SKIN DISCOLOURATION [None]
  - VOMITING [None]
